FAERS Safety Report 6565221-0 (Version None)
Quarter: 2010Q1

REPORT INFORMATION
  Report Type: 
  Country: None (occurrence: None)
  Receive Date: 20100201
  Receipt Date: 20091208
  Transmission Date: 20100710
  Serious: Yes (Death, Hospitalization)
  Sender: FDA-Public Use
  Company Number: US-ROCHE-567536

PATIENT
  Sex: Male
  Weight: 143.5 kg

DRUGS (40)
  1. METHOXY POLYETHYLENE GLYCOL-EPOETIN BETA [Suspect]
     Route: 042
     Dates: start: 20040607
  2. METHOXY POLYETHYLENE GLYCOL-EPOETIN BETA [Suspect]
     Dosage: DOSAGE DECREASED.
     Route: 042
     Dates: start: 20040707
  3. METHOXY POLYETHYLENE GLYCOL-EPOETIN BETA [Suspect]
     Dosage: PERMANENTLY DISCONTINUED. DOSAGE INCREASED.
     Route: 042
     Dates: start: 20050413, end: 20080514
  4. METHOXY POLYETHYLENE GLYCOL-EPOETIN BETA [Suspect]
     Route: 042
  5. HEPARIN [Concomitant]
     Dosage: DOSE: 5000 UNITS
     Route: 042
     Dates: start: 20040122
  6. SIMVASTATIN [Concomitant]
     Dosage: INCREASED TO  TDD 40 MG ON 19 MAY 2006 AND DECREASED TO TDD 10 MG ON 11 NOV 2006.
     Dates: start: 20040209
  7. SIMVASTATIN [Concomitant]
     Dates: start: 20070526
  8. ASPIRIN [Concomitant]
     Dates: start: 20040209
  9. ASPIRIN [Concomitant]
     Dates: start: 20060519
  10. NITROGLYCERIN [Concomitant]
     Dates: start: 20040209
  11. NITROGLYCERIN [Concomitant]
     Dates: start: 20040503
  12. METOPROLOL TARTRATE [Concomitant]
     Dosage: RESTARTED ON 26 JUL 2005.
     Dates: start: 20040223
  13. METOPROLOL TARTRATE [Concomitant]
     Dosage: REPORTED AS: METOPROLOL T+TH ONLY
     Dates: start: 20071024
  14. NEPHRO-VITE [Concomitant]
     Dosage: DOSE FORM REPORTED AS 1 TABLET.
     Dates: start: 20040503
  15. PARICALCITOL [Concomitant]
     Dates: start: 20040515
  16. OXYGEN [Concomitant]
     Dates: start: 19980101
  17. LORATADINE [Concomitant]
     Dates: start: 20050115
  18. RANITIDINE [Concomitant]
     Dosage: ANOTHER REPORTED START DATE IS 26 JULY 2005
     Dates: start: 20050115
  19. DOCUSATE SODIUM [Concomitant]
     Dates: start: 20050115
  20. QUININE SULFATE [Concomitant]
     Dates: start: 20050115
  21. NORMAL SALINE [Concomitant]
     Dosage: DURING DIALYSIS.
     Dates: start: 20040123
  22. LIDOCAINE [Concomitant]
     Dosage: REPORTED AS: LIDOCAINE 1%.
     Dates: start: 20040123
  23. GLIPIZIDE [Concomitant]
     Dosage: START DATE FOR TDD 10 MG IS REPORTED AS:19 MAY 2006.
     Dates: start: 20050711
  24. PHOSLO [Concomitant]
     Dosage: REPORTED AS: 12 TABS STARTED 21 NOVEMBER 2006.
     Dates: start: 20050412
  25. PHOSLO [Concomitant]
     Dosage: DRUG REPORETD AS: CALCIUM ACETATE.
     Dates: start: 20070820
  26. VANCOMYCIN [Concomitant]
     Dates: start: 20051015
  27. FLAGYL [Concomitant]
     Dates: start: 20051001
  28. ROSIGLITAZONE [Concomitant]
     Dates: start: 20060630
  29. ROSIGLITAZONE [Concomitant]
     Dates: start: 20080314
  30. GUAIFENESIN [Concomitant]
     Dates: start: 20061110
  31. ACETAMINOPHEN [Concomitant]
     Dates: start: 20050601
  32. IRON SUCROSE [Concomitant]
     Dates: start: 20061122
  33. TRAZODONE [Concomitant]
     Dates: start: 20070829
  34. ATENOLOL [Concomitant]
     Dates: start: 20071119
  35. CALCIUM ACETATE [Concomitant]
     Dates: start: 20071119
  36. CALCIUM ACETATE [Concomitant]
     Dates: start: 20080317
  37. SEVELAMER [Concomitant]
     Dates: start: 20071119
  38. ANCEF [Concomitant]
     Dosage: TOTAL DAILY DOSE REPORTED AS PRN.
     Dates: start: 20080104
  39. MIDODRINE HYDROCHLORIDE [Concomitant]
     Dates: start: 20080202
  40. OMEPRAZOL [Concomitant]
     Dates: start: 20080314

REACTIONS (3)
  - CARDIO-RESPIRATORY ARREST [None]
  - HYPOTENSION [None]
  - PAIN [None]
